FAERS Safety Report 6613270-6 (Version None)
Quarter: 2010Q1

REPORT INFORMATION
  Report Type: 
  Country: None (occurrence: None)
  Receive Date: 20100304
  Receipt Date: 20100222
  Transmission Date: 20100710
  Serious: Yes (Other)
  Sender: FDA-Public Use
  Company Number: US-BRISTOL-MYERS SQUIBB COMPANY-14997068

PATIENT
  Age: 50 Year
  Sex: Male

DRUGS (3)
  1. PENICILLIN V POTASSIUM [Suspect]
  2. MELPHALAN [Suspect]
  3. LANSOPRAZOLE [Suspect]

REACTIONS (1)
  - RENAL FAILURE ACUTE [None]
